FAERS Safety Report 16686744 (Version 3)
Quarter: 2019Q3

REPORT INFORMATION
  Report Type: Report from Study
  Country: CN (occurrence: CN)
  Receive Date: 20190809
  Receipt Date: 20190827
  Transmission Date: 20191004
  Serious: No
  Sender: FDA-Public Use
  Company Number: CN-AMGEN-CHNSP2019126728

PATIENT
  Age: 34 Year
  Sex: Male

DRUGS (1)
  1. REPATHA [Suspect]
     Active Substance: EVOLOCUMAB
     Indication: ACUTE CORONARY SYNDROME
     Dosage: 140 MILLIGRAM
     Route: 065
     Dates: start: 20190525

REACTIONS (2)
  - Injection site rash [Unknown]
  - Pruritus [Recovered/Resolved]

NARRATIVE: CASE EVENT DATE: 20190525
